FAERS Safety Report 13337146 (Version 2)
Quarter: 2017Q1

REPORT INFORMATION
  Report Type: Spontaneous
  Country: IR (occurrence: IR)
  Receive Date: 20170315
  Receipt Date: 20170331
  Transmission Date: 20170428
  Serious: Yes (Death, Hospitalization, Other)
  Sender: FDA-Public Use
  Company Number: IR-SUN PHARMACEUTICAL INDUSTRIES LTD-2017R1-135737

PATIENT
  Age: 9 Year
  Sex: Female

DRUGS (2)
  1. PAROXETINE. [Suspect]
     Active Substance: PAROXETINE
     Indication: MAJOR DEPRESSION
     Dosage: 20 MG, DAILY
     Route: 065
  2. PAROXETINE. [Suspect]
     Active Substance: PAROXETINE
     Dosage: 10 MG, DAILY
     Route: 065

REACTIONS (7)
  - Insomnia [Unknown]
  - Increased appetite [Unknown]
  - Completed suicide [Fatal]
  - Anxiety [Unknown]
  - Prescription drug used without a prescription [Unknown]
  - Drug ineffective [Unknown]
  - Psychomotor hyperactivity [Unknown]
